FAERS Safety Report 7503653-4 (Version None)
Quarter: 2011Q2

REPORT INFORMATION
  Report Type: 
  Country: None (occurrence: None)
  Receive Date: 20110518
  Receipt Date: 20110504
  Transmission Date: 20111010
  Serious: Yes (Hospitalization, Other)
  Sender: FDA-Public Use
  Company Number: 914124

PATIENT
  Age: 29 Year
  Sex: Male

DRUGS (17)
  1. ALENDRONIC ACID [Concomitant]
  2. (ANTIBIOTICS) [Concomitant]
  3. HUMIRA [Suspect]
     Indication: ANKYLOSING SPONDYLITIS
     Dates: start: 20090101, end: 20100101
  4. ARCOXIA [Concomitant]
  5. (ETORICOXIB) [Concomitant]
  6. CIPROFLOXACIN [Concomitant]
  7. ACETAMINOPHEN [Concomitant]
  8. (SODIUM CROMOGLICATE) [Concomitant]
  9. ACETAMINOPHEN AND CODEINE PHOSPHATE [Concomitant]
  10. SULFASALAZINE [Suspect]
     Indication: PRODUCT USED FOR UNKNOWN INDICATION
     Dosage: 500 MG MILLIGRAM(S)
  11. FEXOFENADINE [Concomitant]
  12. PREDNISOLONE [Concomitant]
  13. FLOXACILLIN SODIUM [Suspect]
     Indication: PRODUCT USED FOR UNKNOWN INDICATION
     Dosage: 500 MG MILLIGRAM(S)
  14. METHOTREXATE [Suspect]
     Indication: PRODUCT USED FOR UNKNOWN INDICATION
     Dosage: 2.5 MG MILLIGRAM(S)
  15. AZATHIOPRINE [Suspect]
     Indication: PRODUCT USED FOR UNKNOWN INDICATION
     Dosage: 10 MG MILLIGRAM(S)
  16. (DERMOL /01330701/) [Concomitant]
  17. OMEPRAZOLE [Concomitant]

REACTIONS (11)
  - LOCALISED INFECTION [None]
  - DERMATITIS [None]
  - PURULENT DISCHARGE [None]
  - TENDERNESS [None]
  - CONDITION AGGRAVATED [None]
  - PAIN [None]
  - ANAL INFECTION [None]
  - ECZEMA [None]
  - DRUG HYPERSENSITIVITY [None]
  - IMPAIRED HEALING [None]
  - CROHN'S DISEASE [None]
